FAERS Safety Report 11887516 (Version 1)
Quarter: 2016Q1

REPORT INFORMATION
  Report Type: Spontaneous
  Country: IT (occurrence: IT)
  Receive Date: 20160105
  Receipt Date: 20160105
  Transmission Date: 20160526
  Serious: Yes (Other)
  Sender: FDA-Public Use
  Company Number: PHHY2015IT170856

PATIENT
  Age: 55 Year
  Sex: Female

DRUGS (3)
  1. HYDROXYCHLOROQUINE [Suspect]
     Active Substance: HYDROXYCHLOROQUINE
     Indication: SYSTEMIC LUPUS ERYTHEMATOSUS
     Dosage: 400 MG, QD
     Route: 065
  2. PREDNISONE. [Concomitant]
     Active Substance: PREDNISONE
     Indication: SYSTEMIC LUPUS ERYTHEMATOSUS
     Dosage: 1 MG/KG, QD
     Route: 065
  3. PREDNISONE. [Concomitant]
     Active Substance: PREDNISONE
     Dosage: 10 MG, QD
     Route: 065

REACTIONS (1)
  - Systemic sclerosis [Unknown]
